FAERS Safety Report 7361464-7 (Version None)
Quarter: 2011Q1

REPORT INFORMATION
  Report Type: 
  Country: None (occurrence: None)
  Receive Date: 20110315
  Receipt Date: 20110315
  Transmission Date: 20110831
  Serious: Yes (Other)
  Sender: FDA-Public Use
  Company Number: None

PATIENT
  Age: 77 Year
  Sex: Male
  Weight: 77.1115 kg

DRUGS (1)
  1. SPIRIVA [Suspect]
     Indication: CHRONIC OBSTRUCTIVE PULMONARY DISEASE
     Dosage: 1 CAPSULE TWICE A DAY ORAL
     Route: 048
     Dates: start: 20101101

REACTIONS (5)
  - DRUG INEFFECTIVE [None]
  - HEART RATE INCREASED [None]
  - DYSPHONIA [None]
  - SINUSITIS [None]
  - IRRITABILITY [None]
